FAERS Safety Report 15408971 (Version 1)
Quarter: 2018Q3

REPORT INFORMATION
  Report Type: Spontaneous
  Country: DE (occurrence: DE)
  Receive Date: 20180920
  Receipt Date: 20180920
  Transmission Date: 20181010
  Serious: Yes (Hospitalization, Other)
  Sender: FDA-Public Use
  Company Number: DE-JNJFOC-20180737868

PATIENT
  Age: 89 Year
  Sex: Female
  Weight: 60 kg

DRUGS (17)
  1. TORASEMID [Concomitant]
     Active Substance: TORSEMIDE
     Dosage: 25MG AND 12.5MG
     Route: 065
  2. APIXABAN [Concomitant]
     Active Substance: APIXABAN
     Route: 065
  3. RAMIPRIL. [Concomitant]
     Active Substance: RAMIPRIL
     Route: 065
  4. RESTEX [Concomitant]
     Active Substance: BENSERAZIDE\LEVODOPA
     Dosage: 100/25MG BID
     Route: 065
  5. TAVOR [Concomitant]
     Dosage: 0.5 TABLET
     Route: 065
  6. FUROSEMIDE. [Concomitant]
     Active Substance: FUROSEMIDE
     Indication: DIURETIC THERAPY
     Route: 042
  7. INNOHEP [Concomitant]
     Active Substance: TINZAPARIN SODIUM
     Route: 065
     Dates: start: 20180418
  8. ZOPICLON [Concomitant]
     Active Substance: ZOPICLONE
     Dosage: 3.75 MG, IN THE EVENENING
     Route: 065
  9. NOVAMINSULFON [Concomitant]
     Active Substance: METAMIZOLE
     Dosage: AS NEEDED, MAX. 4 TABLETS PER DAY
     Route: 065
  10. FERRO?SANOL DUODENAL [Concomitant]
     Active Substance: FERROUS GLYCINE SULFATE
     Route: 065
  11. XARELTO [Suspect]
     Active Substance: RIVAROXABAN
     Indication: ATRIAL FIBRILLATION
     Route: 048
     Dates: start: 20170117, end: 20180403
  12. IRON [Concomitant]
     Active Substance: IRON
     Route: 065
  13. RAMIPRIL. [Concomitant]
     Active Substance: RAMIPRIL
     Route: 065
  14. TORASEMID [Concomitant]
     Active Substance: TORSEMIDE
     Route: 065
  15. PANTOZOL [Concomitant]
     Active Substance: PANTOPRAZOLE SODIUM
     Route: 065
  16. XIPAMID [Concomitant]
     Active Substance: XIPAMIDE
     Route: 065
  17. SPIRONOLACTON [Concomitant]
     Active Substance: SPIRONOLACTONE
     Route: 065

REACTIONS (2)
  - Cardiac failure [Unknown]
  - Haematochezia [Recovering/Resolving]

NARRATIVE: CASE EVENT DATE: 20180328
